FAERS Safety Report 9822630 (Version 4)
Quarter: 2015Q1

REPORT INFORMATION
  Report Type: Report from Study
  Country: US (occurrence: US)
  Receive Date: 20140116
  Receipt Date: 20150128
  Transmission Date: 20150721
  Serious: Yes (Hospitalization)
  Sender: FDA-Public Use
  Company Number: US-BIOGENIDEC-2014BI004209

PATIENT
  Age: 55 Year
  Sex: Female

DRUGS (2)
  1. TYSABRI [Suspect]
     Active Substance: NATALIZUMAB
     Indication: RELAPSING-REMITTING MULTIPLE SCLEROSIS
     Route: 042
     Dates: start: 20101027
  2. TYSABRI [Suspect]
     Active Substance: NATALIZUMAB
     Indication: MULTIPLE SCLEROSIS
     Route: 042
     Dates: start: 20101027

REACTIONS (10)
  - Cerebral haemorrhage [Recovered/Resolved]
  - Speech disorder [Not Recovered/Not Resolved]
  - Hearing impaired [Not Recovered/Not Resolved]
  - Reading disorder [Not Recovered/Not Resolved]
  - Cough [Recovered/Resolved]
  - Thrombosis [Recovered/Resolved with Sequelae]
  - Post procedural complication [Not Recovered/Not Resolved]
  - Dysarthria [Recovered/Resolved]
  - Nasopharyngitis [Recovered/Resolved]
  - Dysgraphia [Not Recovered/Not Resolved]

NARRATIVE: CASE EVENT DATE: 20131214
